FAERS Safety Report 4487257-6 (Version None)
Quarter: 2004Q4

REPORT INFORMATION
  Report Type: 
  Country: None (occurrence: None)
  Receive Date: 20041022
  Receipt Date: 20041013
  Transmission Date: 20050328
  Serious: Yes (Hospitalization)
  Sender: FDA-Public Use
  Company Number: 2004JP001330

PATIENT
  Age: 26 Year
  Sex: Male
  Weight: 30 kg

DRUGS (11)
  1. PROGRAF [Suspect]
     Indication: RENAL TRANSPLANT
     Dosage: 0.90 MG, IV;   #2)  0.24 MG IV
     Route: 042
     Dates: start: 20040629, end: 20040703
  2. PROGRAF [Suspect]
     Indication: RENAL TRANSPLANT
     Dosage: 0.90 MG, IV;   #2)  0.24 MG IV
     Route: 042
     Dates: start: 20040704, end: 20040711
  3. SOLU-MEDROL [Concomitant]
  4. SIMULECT [Concomitant]
  5. CELLCEPT [Concomitant]
  6. NEORAL CAPSULE [Concomitant]
  7. TAZOCIN (PIPERACILLIN SODIUM, TAZOBACTAM SODIUM) [Concomitant]
  8. CEFAMEZIN    (CEFAZOLIN) INJECTION [Concomitant]
  9. CEFAMEZIN           (CEFAZOLIN) INJECTION [Concomitant]
  10. PLETAL [Concomitant]
  11. PROGRAF [Suspect]
     Dosage: 2.00 MG, BID, ORAL
     Route: 048
     Dates: start: 20040712

REACTIONS (5)
  - DYSTONIA [None]
  - MUSCLE SPASTICITY [None]
  - POST PROCEDURAL COMPLICATION [None]
  - POSTURE ABNORMAL [None]
  - TREMOR [None]
